FAERS Safety Report 15612811 (Version 9)
Quarter: 2025Q3

REPORT INFORMATION
  Report Type: Spontaneous
  Country: EU (occurrence: EU)
  Receive Date: 20181113
  Receipt Date: 20250707
  Transmission Date: 20251020
  Serious: Yes (Other)
  Sender: MYLAN
  Company Number: None

PATIENT
  Age: 8 Year
  Sex: Male

DRUGS (92)
  1. TACROLIMUS [Suspect]
     Active Substance: TACROLIMUS
     Indication: Prophylaxis against graft versus host disease
  2. TACROLIMUS [Suspect]
     Active Substance: TACROLIMUS
     Indication: Bone marrow conditioning regimen
  3. TACROLIMUS [Suspect]
     Active Substance: TACROLIMUS
     Indication: Stem cell transplant
     Route: 042
  4. TACROLIMUS [Suspect]
     Active Substance: TACROLIMUS
     Route: 042
  5. TACROLIMUS [Suspect]
     Active Substance: TACROLIMUS
  6. TACROLIMUS [Suspect]
     Active Substance: TACROLIMUS
  7. TACROLIMUS [Suspect]
     Active Substance: TACROLIMUS
     Route: 042
  8. TACROLIMUS [Suspect]
     Active Substance: TACROLIMUS
     Route: 042
  9. MYCOPHENOLATE MOFETIL [Suspect]
     Active Substance: MYCOPHENOLATE MOFETIL
     Indication: Prophylaxis against graft versus host disease
     Dosage: (DAILY DOSE: 45 MG/KG MILLIGRAM(S)/KILOGRAM EVERY DAY)
     Route: 065
  10. MYCOPHENOLATE MOFETIL [Suspect]
     Active Substance: MYCOPHENOLATE MOFETIL
     Indication: Stem cell transplant
     Dosage: (DAILY DOSE: 45 MG/KG MILLIGRAM(S)/KILOGRAM EVERY DAY)
  11. MYCOPHENOLATE MOFETIL [Suspect]
     Active Substance: MYCOPHENOLATE MOFETIL
     Indication: Bone marrow conditioning regimen
     Dosage: (DAILY DOSE: 45 MG/KG MILLIGRAM(S)/KILOGRAM EVERY DAY)
  12. MYCOPHENOLATE MOFETIL [Suspect]
     Active Substance: MYCOPHENOLATE MOFETIL
     Dosage: (DAILY DOSE: 45 MG/KG MILLIGRAM(S)/KILOGRAM EVERY DAY)
     Route: 065
  13. MYCOPHENOLATE MOFETIL [Suspect]
     Active Substance: MYCOPHENOLATE MOFETIL
     Dosage: 15 MILLIGRAM/KILOGRAM, Q8HFROM DAY +5 TO DAY +35
     Route: 065
  14. MYCOPHENOLATE MOFETIL [Suspect]
     Active Substance: MYCOPHENOLATE MOFETIL
     Dosage: 15 MILLIGRAM/KILOGRAM, Q8HFROM DAY +5 TO DAY +35
  15. MYCOPHENOLATE MOFETIL [Suspect]
     Active Substance: MYCOPHENOLATE MOFETIL
     Dosage: 15 MILLIGRAM/KILOGRAM, Q8HFROM DAY +5 TO DAY +35
  16. MYCOPHENOLATE MOFETIL [Suspect]
     Active Substance: MYCOPHENOLATE MOFETIL
     Dosage: 15 MILLIGRAM/KILOGRAM, Q8HFROM DAY +5 TO DAY +35
     Route: 065
  17. MYCOPHENOLATE MOFETIL [Suspect]
     Active Substance: MYCOPHENOLATE MOFETIL
     Dosage: 45 MILLIGRAM/KILOGRAM, QD
     Route: 048
  18. MYCOPHENOLATE MOFETIL [Suspect]
     Active Substance: MYCOPHENOLATE MOFETIL
     Dosage: 45 MILLIGRAM/KILOGRAM, QD
  19. MYCOPHENOLATE MOFETIL [Suspect]
     Active Substance: MYCOPHENOLATE MOFETIL
     Dosage: 45 MILLIGRAM/KILOGRAM, QD
  20. MYCOPHENOLATE MOFETIL [Suspect]
     Active Substance: MYCOPHENOLATE MOFETIL
     Dosage: 45 MILLIGRAM/KILOGRAM, QD
     Route: 048
  21. MYCOPHENOLATE MOFETIL [Suspect]
     Active Substance: MYCOPHENOLATE MOFETIL
     Route: 065
  22. MYCOPHENOLATE MOFETIL [Suspect]
     Active Substance: MYCOPHENOLATE MOFETIL
  23. MYCOPHENOLATE MOFETIL [Suspect]
     Active Substance: MYCOPHENOLATE MOFETIL
  24. MYCOPHENOLATE MOFETIL [Suspect]
     Active Substance: MYCOPHENOLATE MOFETIL
     Route: 065
  25. FLUDARABINE [Suspect]
     Active Substance: FLUDARABINE PHOSPHATE
     Indication: Sickle cell disease
     Dosage: 30 MG/M2, QD,(30 MG/M2, QD ON DAYS -7 TO -3 OF THE HSCT   )
  26. FLUDARABINE [Suspect]
     Active Substance: FLUDARABINE PHOSPHATE
     Indication: Bone marrow conditioning regimen
     Dosage: 30 MG/M2, QD,(30 MG/M2, QD ON DAYS -7 TO -3 OF THE HSCT   )
     Route: 065
  27. FLUDARABINE [Suspect]
     Active Substance: FLUDARABINE PHOSPHATE
     Dosage: 30 MG/M2, QD,(30 MG/M2, QD ON DAYS -7 TO -3 OF THE HSCT   )
     Route: 065
  28. FLUDARABINE [Suspect]
     Active Substance: FLUDARABINE PHOSPHATE
     Dosage: 30 MG/M2, QD,(30 MG/M2, QD ON DAYS -7 TO -3 OF THE HSCT   )
  29. TREOSULFAN [Suspect]
     Active Substance: TREOSULFAN
     Indication: Bone marrow conditioning regimen
     Dosage: 14000 MILLIGRAM/SQ. METER, QDON DAYS -7 TO -5
     Route: 065
  30. TREOSULFAN [Suspect]
     Active Substance: TREOSULFAN
     Indication: Sickle cell disease
     Dosage: 14000 MILLIGRAM/SQ. METER, QDON DAYS -7 TO -5
  31. TREOSULFAN [Suspect]
     Active Substance: TREOSULFAN
     Dosage: 14000 MILLIGRAM/SQ. METER, QDON DAYS -7 TO -5
  32. TREOSULFAN [Suspect]
     Active Substance: TREOSULFAN
     Dosage: 14000 MILLIGRAM/SQ. METER, QDON DAYS -7 TO -5
     Route: 065
  33. TREOSULFAN [Suspect]
     Active Substance: TREOSULFAN
     Dosage: 14 G/M2, QD
     Route: 065
  34. TREOSULFAN [Suspect]
     Active Substance: TREOSULFAN
     Dosage: 14 G/M2, QD
  35. TREOSULFAN [Suspect]
     Active Substance: TREOSULFAN
     Dosage: 14 G/M2, QD
  36. TREOSULFAN [Suspect]
     Active Substance: TREOSULFAN
     Dosage: 14 G/M2, QD
     Route: 065
  37. ALEMTUZUMAB [Suspect]
     Active Substance: ALEMTUZUMAB
     Indication: Bone marrow conditioning regimen
     Dosage: 0.2 MG/KG, QD,ON DAYS -9 AND -8
  38. ALEMTUZUMAB [Suspect]
     Active Substance: ALEMTUZUMAB
     Indication: Immunosuppression
     Dosage: 0.2 MG/KG, QD,ON DAYS -9 AND -8
     Route: 065
  39. ALEMTUZUMAB [Suspect]
     Active Substance: ALEMTUZUMAB
     Indication: Sickle cell disease
     Dosage: 0.2 MG/KG, QD,ON DAYS -9 AND -8
     Route: 065
  40. ALEMTUZUMAB [Suspect]
     Active Substance: ALEMTUZUMAB
     Dosage: 0.2 MG/KG, QD,ON DAYS -9 AND -8
  41. CYCLOPHOSPHAMIDE [Suspect]
     Active Substance: CYCLOPHOSPHAMIDE
     Indication: Prophylaxis against graft versus host disease
     Dosage: 14.5 MG/KG, QD,(ON DAYS -3 AND -2 OF THE HSCT))
     Route: 065
  42. CYCLOPHOSPHAMIDE [Suspect]
     Active Substance: CYCLOPHOSPHAMIDE
     Indication: Stem cell transplant
     Dosage: 14.5 MG/KG, QD,(ON DAYS -3 AND -2 OF THE HSCT))
     Route: 065
  43. CYCLOPHOSPHAMIDE [Suspect]
     Active Substance: CYCLOPHOSPHAMIDE
     Indication: Sickle cell disease
     Dosage: 14.5 MG/KG, QD,(ON DAYS -3 AND -2 OF THE HSCT))
  44. CYCLOPHOSPHAMIDE [Suspect]
     Active Substance: CYCLOPHOSPHAMIDE
     Indication: Bone marrow conditioning regimen
     Dosage: 14.5 MG/KG, QD,(ON DAYS -3 AND -2 OF THE HSCT))
  45. CYCLOPHOSPHAMIDE [Suspect]
     Active Substance: CYCLOPHOSPHAMIDE
     Dosage: 50 MG/KG, QD,(ON DAYS +3 AND +4 OF THE HSCT)
  46. CYCLOPHOSPHAMIDE [Suspect]
     Active Substance: CYCLOPHOSPHAMIDE
     Dosage: 50 MG/KG, QD,(ON DAYS +3 AND +4 OF THE HSCT)
     Route: 065
  47. CYCLOPHOSPHAMIDE [Suspect]
     Active Substance: CYCLOPHOSPHAMIDE
     Dosage: 50 MG/KG, QD,(ON DAYS +3 AND +4 OF THE HSCT)
     Route: 065
  48. CYCLOPHOSPHAMIDE [Suspect]
     Active Substance: CYCLOPHOSPHAMIDE
     Dosage: 50 MG/KG, QD,(ON DAYS +3 AND +4 OF THE HSCT)
  49. CYCLOPHOSPHAMIDE [Suspect]
     Active Substance: CYCLOPHOSPHAMIDE
     Dosage: 50 MG/KG, QD
  50. CYCLOPHOSPHAMIDE [Suspect]
     Active Substance: CYCLOPHOSPHAMIDE
     Dosage: 50 MG/KG, QD
  51. CYCLOPHOSPHAMIDE [Suspect]
     Active Substance: CYCLOPHOSPHAMIDE
     Dosage: 50 MG/KG, QD
     Route: 065
  52. CYCLOPHOSPHAMIDE [Suspect]
     Active Substance: CYCLOPHOSPHAMIDE
     Dosage: 50 MG/KG, QD
     Route: 065
  53. CYCLOPHOSPHAMIDE [Suspect]
     Active Substance: CYCLOPHOSPHAMIDE
     Dosage: 14.5 MG/KG/DAY ON DAYS -3 AND -2
  54. CYCLOPHOSPHAMIDE [Suspect]
     Active Substance: CYCLOPHOSPHAMIDE
     Dosage: 14.5 MG/KG/DAY ON DAYS -3 AND -2
  55. CYCLOPHOSPHAMIDE [Suspect]
     Active Substance: CYCLOPHOSPHAMIDE
     Dosage: 14.5 MG/KG/DAY ON DAYS -3 AND -2
     Route: 065
  56. CYCLOPHOSPHAMIDE [Suspect]
     Active Substance: CYCLOPHOSPHAMIDE
     Dosage: 14.5 MG/KG/DAY ON DAYS -3 AND -2
     Route: 065
  57. CYCLOPHOSPHAMIDE [Suspect]
     Active Substance: CYCLOPHOSPHAMIDE
     Dosage: 50 MILLIGRAM/KILOGRAM, BID (2 X 50 MG/KG/DAY ON DAYS +3 AND +4)
  58. CYCLOPHOSPHAMIDE [Suspect]
     Active Substance: CYCLOPHOSPHAMIDE
     Dosage: 50 MILLIGRAM/KILOGRAM, BID (2 X 50 MG/KG/DAY ON DAYS +3 AND +4)
  59. CYCLOPHOSPHAMIDE [Suspect]
     Active Substance: CYCLOPHOSPHAMIDE
     Dosage: 50 MILLIGRAM/KILOGRAM, BID (2 X 50 MG/KG/DAY ON DAYS +3 AND +4)
     Route: 065
  60. CYCLOPHOSPHAMIDE [Suspect]
     Active Substance: CYCLOPHOSPHAMIDE
     Dosage: 50 MILLIGRAM/KILOGRAM, BID (2 X 50 MG/KG/DAY ON DAYS +3 AND +4)
     Route: 065
  61. CYCLOPHOSPHAMIDE [Suspect]
     Active Substance: CYCLOPHOSPHAMIDE
     Dosage: 2 X 50 MG/KG/DAY ON DAYS +3 AND +4
     Route: 065
  62. CYCLOPHOSPHAMIDE [Suspect]
     Active Substance: CYCLOPHOSPHAMIDE
     Dosage: 2 X 50 MG/KG/DAY ON DAYS +3 AND +4
  63. CYCLOPHOSPHAMIDE [Suspect]
     Active Substance: CYCLOPHOSPHAMIDE
     Dosage: 2 X 50 MG/KG/DAY ON DAYS +3 AND +4
  64. CYCLOPHOSPHAMIDE [Suspect]
     Active Substance: CYCLOPHOSPHAMIDE
     Dosage: 2 X 50 MG/KG/DAY ON DAYS +3 AND +4
     Route: 065
  65. CYCLOPHOSPHAMIDE [Suspect]
     Active Substance: CYCLOPHOSPHAMIDE
  66. CYCLOPHOSPHAMIDE [Suspect]
     Active Substance: CYCLOPHOSPHAMIDE
  67. CYCLOPHOSPHAMIDE [Suspect]
     Active Substance: CYCLOPHOSPHAMIDE
     Route: 065
  68. CYCLOPHOSPHAMIDE [Suspect]
     Active Substance: CYCLOPHOSPHAMIDE
     Route: 065
  69. THIOTEPA [Suspect]
     Active Substance: THIOTEPA
     Indication: Bone marrow conditioning regimen
     Dosage: 5 MG/KG, BID,(10 MG/KG MILLIGRAM DAILY) (2X5 MG/KG/DAY ON DAY -4)
     Route: 065
  70. THIOTEPA [Suspect]
     Active Substance: THIOTEPA
     Indication: Sickle cell disease
     Dosage: 5 MG/KG, BID,(10 MG/KG MILLIGRAM DAILY) (2X5 MG/KG/DAY ON DAY -4)
  71. THIOTEPA [Suspect]
     Active Substance: THIOTEPA
     Dosage: 5 MG/KG, BID,(10 MG/KG MILLIGRAM DAILY) (2X5 MG/KG/DAY ON DAY -4)
  72. THIOTEPA [Suspect]
     Active Substance: THIOTEPA
     Dosage: 5 MG/KG, BID,(10 MG/KG MILLIGRAM DAILY) (2X5 MG/KG/DAY ON DAY -4)
     Route: 065
  73. THIOTEPA [Suspect]
     Active Substance: THIOTEPA
     Dosage: 5 MILLIGRAM/KILOGRAM, QD (DAILY DOSE: 10 MG/KG MILLIGRAM(S)/KILOGRAM EVERY DAY)
     Route: 065
  74. THIOTEPA [Suspect]
     Active Substance: THIOTEPA
     Dosage: 5 MILLIGRAM/KILOGRAM, QD (DAILY DOSE: 10 MG/KG MILLIGRAM(S)/KILOGRAM EVERY DAY)
  75. THIOTEPA [Suspect]
     Active Substance: THIOTEPA
     Dosage: 5 MILLIGRAM/KILOGRAM, QD (DAILY DOSE: 10 MG/KG MILLIGRAM(S)/KILOGRAM EVERY DAY)
  76. THIOTEPA [Suspect]
     Active Substance: THIOTEPA
     Dosage: 5 MILLIGRAM/KILOGRAM, QD (DAILY DOSE: 10 MG/KG MILLIGRAM(S)/KILOGRAM EVERY DAY)
     Route: 065
  77. HYDROXYUREA [Concomitant]
     Active Substance: HYDROXYUREA
     Indication: Sickle cell disease
  78. HYDROXYUREA [Concomitant]
     Active Substance: HYDROXYUREA
  79. HYDROXYUREA [Concomitant]
     Active Substance: HYDROXYUREA
     Route: 065
  80. HYDROXYUREA [Concomitant]
     Active Substance: HYDROXYUREA
     Route: 065
  81. HYDROXYUREA [Concomitant]
     Active Substance: HYDROXYUREA
  82. HYDROXYUREA [Concomitant]
     Active Substance: HYDROXYUREA
  83. HYDROXYUREA [Concomitant]
     Active Substance: HYDROXYUREA
     Route: 065
  84. HYDROXYUREA [Concomitant]
     Active Substance: HYDROXYUREA
     Route: 065
  85. GRANULOCYTE COLONY-STIMULATING FACTOR NOS [Concomitant]
     Active Substance: GRANULOCYTE COLONY-STIMULATING FACTOR NOS
     Indication: Product used for unknown indication
     Dosage: 5 MICROGRAM/KILOGRAM, QDFROM DAY +5 UNTIL ENGRAFTMENT
  86. GRANULOCYTE COLONY-STIMULATING FACTOR NOS [Concomitant]
     Active Substance: GRANULOCYTE COLONY-STIMULATING FACTOR NOS
     Dosage: 5 MICROGRAM/KILOGRAM, QDFROM DAY +5 UNTIL ENGRAFTMENT
     Route: 042
  87. GRANULOCYTE COLONY-STIMULATING FACTOR NOS [Concomitant]
     Active Substance: GRANULOCYTE COLONY-STIMULATING FACTOR NOS
     Dosage: 5 MICROGRAM/KILOGRAM, QDFROM DAY +5 UNTIL ENGRAFTMENT
     Route: 042
  88. GRANULOCYTE COLONY-STIMULATING FACTOR NOS [Concomitant]
     Active Substance: GRANULOCYTE COLONY-STIMULATING FACTOR NOS
     Dosage: 5 MICROGRAM/KILOGRAM, QDFROM DAY +5 UNTIL ENGRAFTMENT
  89. LEVETIRACETAM [Concomitant]
     Active Substance: LEVETIRACETAM
     Indication: Prophylaxis
  90. LEVETIRACETAM [Concomitant]
     Active Substance: LEVETIRACETAM
     Indication: Seizure prophylaxis
     Route: 065
  91. LEVETIRACETAM [Concomitant]
     Active Substance: LEVETIRACETAM
     Route: 065
  92. LEVETIRACETAM [Concomitant]
     Active Substance: LEVETIRACETAM

REACTIONS (5)
  - Mucosal inflammation [Unknown]
  - Graft versus host disease in skin [Unknown]
  - Cytomegalovirus infection reactivation [Recovered/Resolved]
  - Cytomegalovirus infection [Unknown]
  - Product use in unapproved indication [Unknown]
